FAERS Safety Report 8263500-2 (Version None)
Quarter: 2012Q1

REPORT INFORMATION
  Report Type: 
  Country: None (occurrence: None)
  Receive Date: 20120327
  Receipt Date: 20100524
  Transmission Date: 20120608
  Serious: Yes (Other)
  Sender: FDA-Public Use
  Company Number: PHHY2010US27896

PATIENT
  Age: 68 Year
  Sex: Male
  Weight: 101 kg

DRUGS (8)
  1. MULTAQ [Concomitant]
  2. PREVACID (LANSOPRAZOLE) 01/01/2008 TO UNK [Concomitant]
  3. BETTAPACE (SOTALOL HYDROCHLORIDE) 01/01/2008 TO UNK [Concomitant]
  4. GLEEVEC [Suspect]
     Indication: MALIGNANT SOFT TISSUE NEOPLASM
     Dosage: 400 MG, BID, ORAL
     Route: 048
     Dates: start: 20100303
  5. VITRON-C (ASCORBIC ACID, FERROUS FUMARATE) [Concomitant]
  6. BYSTOLIC (NEBIVOLOL HYDROCHLORIDE) 02/10/2010 TO ONGOING [Concomitant]
  7. PRAVASTATIN SODIUM (PROVASTATIN SODIUM) 08/31/2009 TO UNK [Concomitant]
  8. ASPIRIN [Concomitant]

REACTIONS (3)
  - ANAEMIA [None]
  - DYSPNOEA [None]
  - HAEMOGLOBIN DECREASED [None]
